FAERS Safety Report 8060852-3 (Version None)
Quarter: 2012Q1

REPORT INFORMATION
  Report Type: 
  Country: None (occurrence: None)
  Receive Date: 20120120
  Receipt Date: 20120117
  Transmission Date: 20120608
  Serious: Yes (Other)
  Sender: FDA-Public Use
  Company Number: US-PFIZER INC-2011286098

PATIENT
  Sex: Female

DRUGS (4)
  1. TRAMADOL [Concomitant]
     Indication: COMPLEX REGIONAL PAIN SYNDROME
     Dosage: UNK
     Dates: start: 20040101
  2. CHANTIX [Suspect]
     Indication: SMOKING CESSATION THERAPY
     Dosage: 0.5 MG, 2X/DAY
     Route: 048
     Dates: start: 20111006, end: 20111001
  3. CHANTIX [Suspect]
     Dosage: UNK
     Route: 048
     Dates: start: 20111001, end: 20111027
  4. PREMARIN [Concomitant]
     Dosage: UNK
     Dates: start: 20070101

REACTIONS (13)
  - RASH GENERALISED [None]
  - PSORIASIS [None]
  - PAIN [None]
  - ANGER [None]
  - MENTAL DISORDER [None]
  - ABNORMAL BEHAVIOUR [None]
  - HYPERSENSITIVITY [None]
  - BLISTER [None]
  - IRRITABILITY [None]
  - OROPHARYNGEAL BLISTERING [None]
  - AGGRESSION [None]
  - MENTAL IMPAIRMENT [None]
  - GENERAL PHYSICAL CONDITION ABNORMAL [None]
